FAERS Safety Report 7464098-9 (Version None)
Quarter: 2011Q2

REPORT INFORMATION
  Report Type: 
  Country: None (occurrence: None)
  Receive Date: 20110506
  Receipt Date: 20110503
  Transmission Date: 20111010
  Serious: Yes (Other)
  Sender: FDA-Public Use
  Company Number: US-ABBOTT-11P-163-0723473-00

PATIENT
  Sex: Male

DRUGS (3)
  1. NAPROXEN [Concomitant]
     Indication: INFLAMMATION
  2. HUMIRA [Suspect]
     Indication: PSORIATIC ARTHROPATHY
     Dates: start: 20090101, end: 20110201
  3. HUMIRA [Suspect]
     Dates: start: 20110201

REACTIONS (3)
  - JOINT SWELLING [None]
  - NASAL SEPTUM DEVIATION [None]
  - PSORIATIC ARTHROPATHY [None]
